FAERS Safety Report 14623768 (Version 1)
Quarter: 2018Q1

REPORT INFORMATION
  Report Type: Spontaneous
  Country: US (occurrence: US)
  Receive Date: 20180309
  Receipt Date: 20180309
  Transmission Date: 20180509
  Serious: No
  Sender: FDA-Public Use
  Company Number: None

PATIENT
  Age: 59 Year
  Sex: Female

DRUGS (3)
  1. MOBIC [Concomitant]
     Active Substance: MELOXICAM
  2. ACTHAR [Suspect]
     Active Substance: CORTICOTROPIN
     Indication: SYSTEMIC LUPUS ERYTHEMATOSUS
     Dosage: DOSE - 80 UNITS/ML
     Route: 030
     Dates: start: 20170817
  3. SAVELLA [Concomitant]
     Active Substance: MILNACIPRAN HYDROCHLORIDE

REACTIONS (1)
  - Injection site pruritus [None]
